FAERS Safety Report 18955690 (Version 2)
Quarter: 2021Q2

REPORT INFORMATION
  Report Type: Report from Study
  Country: US (occurrence: US)
  Receive Date: 20210302
  Receipt Date: 20210412
  Transmission Date: 20210717
  Serious: Yes (Hospitalization)
  Sender: FDA-Public Use
  Company Number: US-JNJFOC-20210246144

PATIENT
  Age: 18 Year
  Sex: Female
  Weight: 48.58 kg

DRUGS (4)
  1. INFLIXIMAB, RECOMBINANT [Suspect]
     Active Substance: INFLIXIMAB
     Indication: INFLAMMATORY BOWEL DISEASE
     Route: 042
     Dates: start: 20130510, end: 20150316
  2. AMOXICILLIN. [Concomitant]
     Active Substance: AMOXICILLIN
  3. STELARA [Concomitant]
     Active Substance: USTEKINUMAB
     Dates: start: 20180803
  4. IRON [Concomitant]
     Active Substance: IRON

REACTIONS (1)
  - Crohn^s disease [Recovered/Resolved]

NARRATIVE: CASE EVENT DATE: 202009
